FAERS Safety Report 25824661 (Version 1)
Quarter: 2025Q3

REPORT INFORMATION
  Report Type: Report from Study
  Country: CA (occurrence: CA)
  Receive Date: 20250919
  Receipt Date: 20250919
  Transmission Date: 20251021
  Serious: Yes (Disabling, Other)
  Sender: TAKEDA
  Company Number: CA-TAKEDA-2023TUS002349

PATIENT
  Age: 59 Year
  Sex: Female

DRUGS (6)
  1. VEDOLIZUMAB [Suspect]
     Active Substance: VEDOLIZUMAB
     Indication: Crohn^s disease
  2. VEDOLIZUMAB [Suspect]
     Active Substance: VEDOLIZUMAB
     Dosage: 300 MILLIGRAM, Q4WEEKS
     Dates: start: 20230105
  3. VEDOLIZUMAB [Suspect]
     Active Substance: VEDOLIZUMAB
     Dosage: 300 MILLIGRAM, Q4WEEKS
  4. VEDOLIZUMAB [Suspect]
     Active Substance: VEDOLIZUMAB
     Dosage: 300 MILLIGRAM, Q4WEEKS
  5. VITAMIN D NOS [Concomitant]
     Active Substance: CHOLECALCIFEROL\ERGOCALCIFEROL
  6. CALCIUM [Concomitant]
     Active Substance: CALCIUM

REACTIONS (8)
  - Neuropathy peripheral [Recovering/Resolving]
  - Heart rate irregular [Recovering/Resolving]
  - Fatigue [Recovering/Resolving]
  - Infusion site discomfort [Recovering/Resolving]
  - Infusion site extravasation [Recovering/Resolving]
  - Infusion site paraesthesia [Recovered/Resolved with Sequelae]
  - Infusion site hypoaesthesia [Recovered/Resolved with Sequelae]
  - Infusion site swelling [Recovered/Resolved with Sequelae]

NARRATIVE: CASE EVENT DATE: 20230105
